FAERS Safety Report 8888740 (Version 1)
Quarter: 2012Q4

REPORT INFORMATION
  Report Type: 
  Country: US (occurrence: US)
  Receive Date: 20121106
  Receipt Date: 20121106
  Transmission Date: 20130627
  Serious: No
  Sender: FDA-Public Use
  Company Number: US-BAYER-2012-115964

PATIENT
  Age: 58 Year
  Sex: Female

DRUGS (1)
  1. CIPRO [Suspect]
     Indication: SYSTEMIC MASTOCYTOSIS
     Dosage: 250mg once day and periodically burst of 1000 mg per day
     Dates: start: 201112

REACTIONS (1)
  - Tendonitis [None]
